FAERS Safety Report 7561257-1 (Version None)
Quarter: 2011Q2

REPORT INFORMATION
  Report Type: 
  Country: None (occurrence: None)
  Receive Date: 20110620
  Receipt Date: 20110620
  Transmission Date: 20111010
  Serious: Yes (Other)
  Sender: FDA-Public Use
  Company Number: None

PATIENT
  Age: 45 Year
  Sex: Female
  Weight: 82.1011 kg

DRUGS (2)
  1. BUPROPION HYDROCHLORIDE [Suspect]
     Indication: DEPRESSION
     Dosage: 75 3 TIMES DAILY
     Dates: start: 20091110, end: 20100104
  2. BUPROPION HYDROCHLORIDE [Suspect]
     Indication: ANXIETY
     Dosage: 75 3 TIMES DAILY
     Dates: start: 20091110, end: 20100104

REACTIONS (4)
  - CONDITION AGGRAVATED [None]
  - DRUG INEFFECTIVE [None]
  - PRODUCT SUBSTITUTION ISSUE [None]
  - DEPRESSION [None]
